FAERS Safety Report 19856013 (Version 1)
Quarter: 2021Q3

REPORT INFORMATION
  Report Type: Spontaneous
  Country: US (occurrence: US)
  Receive Date: 20210920
  Receipt Date: 20210920
  Transmission Date: 20211014
  Serious: No
  Sender: FDA-Public Use
  Company Number: US-ASTRAZENECA-2021A706882

PATIENT

DRUGS (2)
  1. FULVESTRANT. [Suspect]
     Active Substance: FULVESTRANT
     Route: 030
  2. IBRANCE [Suspect]
     Active Substance: PALBOCICLIB
     Route: 048
     Dates: start: 20210719

REACTIONS (10)
  - Pain [Unknown]
  - Vision blurred [Unknown]
  - Full blood count abnormal [Unknown]
  - Rhinorrhoea [Unknown]
  - Blister [Unknown]
  - Fatigue [Unknown]
  - Injection site reaction [Unknown]
  - Lacrimation increased [Unknown]
  - Stomatitis [Unknown]
  - Rash pruritic [Unknown]
